FAERS Safety Report 22978581 (Version 2)
Quarter: 2023Q4

REPORT INFORMATION
  Report Type: Spontaneous
  Country: CO (occurrence: CO)
  Receive Date: 20230925
  Receipt Date: 20231024
  Transmission Date: 20240110
  Serious: Yes (Hospitalization, Other)
  Sender: FDA-Public Use
  Company Number: CO-SA-SAC20230922000278

PATIENT
  Age: 88 Year
  Sex: Male

DRUGS (1)
  1. PRALUENT [Suspect]
     Active Substance: ALIROCUMAB
     Indication: Type IIa hyperlipidaemia
     Dosage: 75 MG, Q15D
     Route: 058
     Dates: start: 20230601, end: 2023

REACTIONS (3)
  - Renal failure [Recovering/Resolving]
  - Illness [Unknown]
  - Swelling [Unknown]

NARRATIVE: CASE EVENT DATE: 20230828
